FAERS Safety Report 24260995 (Version 1)
Quarter: 2024Q3

REPORT INFORMATION
  Report Type: Spontaneous
  Country: US (occurrence: US)
  Receive Date: 20240829
  Receipt Date: 20240829
  Transmission Date: 20241016
  Serious: No
  Sender: NOVARTIS
  Company Number: US-002147023-NVSC2024US174080

PATIENT
  Age: 64 Year
  Sex: Female

DRUGS (1)
  1. LEQVIO [Suspect]
     Active Substance: INCLISIRAN SODIUM
     Indication: Low density lipoprotein increased
     Dosage: 1 MG (INITIAL DOSE AND 2ND DOSE 3 MONTHS AND TWICE YEAR)
     Route: 058
     Dates: start: 20240505, end: 20240828

REACTIONS (1)
  - Arthralgia [Not Recovered/Not Resolved]
